FAERS Safety Report 13783418 (Version 2)
Quarter: 2017Q3

REPORT INFORMATION
  Report Type: Spontaneous
  Country: GB (occurrence: GB)
  Receive Date: 20170724
  Receipt Date: 20170830
  Transmission Date: 20171127
  Serious: Yes (Other)
  Sender: FDA-Public Use
  Company Number: GB-SA-2017SA131344

PATIENT
  Age: 88 Year
  Sex: Female

DRUGS (9)
  1. SOLIRIS [Suspect]
     Active Substance: ECULIZUMAB
     Dosage: 1200 MG, Q2W
     Route: 065
  2. SOLIRIS [Suspect]
     Active Substance: ECULIZUMAB
     Dosage: UNK
     Route: 065
  3. TIOTROPIUM BROMIDE [Suspect]
     Active Substance: TIOTROPIUM BROMIDE
     Route: 065
  4. VENTOLIN [Suspect]
     Active Substance: ALBUTEROL SULFATE
     Route: 065
  5. CLOPIDOGREL BISULFATE. [Suspect]
     Active Substance: CLOPIDOGREL BISULFATE
     Route: 048
  6. AMLODIPINE [Suspect]
     Active Substance: AMLODIPINE BESYLATE
     Route: 065
  7. EPREX [Suspect]
     Active Substance: ERYTHROPOIETIN
     Indication: ANAEMIA
     Dosage: 1000 IU/0.5 ML
     Route: 065
  8. PHENOXYMETHYLPENICILLIN [Suspect]
     Active Substance: PENICILLIN V
     Route: 065
  9. CETIRIZINE [Suspect]
     Active Substance: CETIRIZINE HYDROCHLORIDE
     Route: 065

REACTIONS (4)
  - Fatigue [Not Recovered/Not Resolved]
  - Dysphagia [Not Recovered/Not Resolved]
  - Chronic obstructive pulmonary disease [Unknown]
  - Dyspnoea [Unknown]
